FAERS Safety Report 6518501-9 (Version None)
Quarter: 2009Q4

REPORT INFORMATION
  Report Type: 
  Country: None (occurrence: None)
  Receive Date: 20091226
  Receipt Date: 20091216
  Transmission Date: 20100525
  Serious: Yes (Other)
  Sender: FDA-Public Use
  Company Number: IT-JNJFOC-20091206034

PATIENT
  Sex: Male

DRUGS (3)
  1. NIZORAL [Suspect]
     Indication: DERMATITIS BULLOUS
     Route: 061
  2. MUTIVITAMINS [Concomitant]
     Route: 048
  3. TPN [Concomitant]
     Route: 048

REACTIONS (3)
  - HYPERAEMIA [None]
  - SKIN ULCER [None]
  - URTICARIA [None]
